FAERS Safety Report 9125391 (Version 1)
Quarter: 2013Q1

REPORT INFORMATION
  Report Type: Spontaneous
  Country: US (occurrence: US)
  Receive Date: 20130117
  Receipt Date: 20130117
  Transmission Date: 20140127
  Serious: No
  Sender: FDA-Public Use
  Company Number: US-BRISTOL-MYERS SQUIBB COMPANY-17088337

PATIENT
  Age: 58 Year
  Sex: Female

DRUGS (4)
  1. YERVOY [Suspect]
     Indication: MALIGNANT MELANOMA
     Route: 042
     Dates: start: 20120920, end: 20121121
  2. LYRICA [Suspect]
     Indication: NEURALGIA
  3. COZAAR [Suspect]
     Indication: HYPERTENSION
  4. EFFEXOR [Suspect]
     Indication: HOT FLUSH

REACTIONS (1)
  - Dizziness [Recovered/Resolved]
